FAERS Safety Report 9748724 (Version 1)
Quarter: 2013Q4

REPORT INFORMATION
  Report Type: Report from Study
  Country: EG (occurrence: EG)
  Receive Date: 20131212
  Receipt Date: 20131212
  Transmission Date: 20140711
  Serious: Yes (Death, Hospitalization, Other)
  Sender: FDA-Public Use
  Company Number: EG-SA-2013SA127541

PATIENT
  Age: 63 Year
  Sex: Female

DRUGS (1)
  1. LANTUS [Suspect]
     Indication: TYPE 2 DIABETES MELLITUS
     Route: 058
     Dates: start: 20131001, end: 20131118

REACTIONS (4)
  - Death [Fatal]
  - Coma [Unknown]
  - Pyrexia [Unknown]
  - Blood glucose fluctuation [Unknown]
